FAERS Safety Report 25477111 (Version 1)
Quarter: 2025Q2

REPORT INFORMATION
  Report Type: Spontaneous
  Country: US (occurrence: US)
  Receive Date: 20250625
  Receipt Date: 20250625
  Transmission Date: 20250717
  Serious: Yes (Hospitalization)
  Sender: ROCHE
  Company Number: US-ROCHE-10000317703

PATIENT
  Age: 32 Year
  Sex: Female
  Weight: 71.67 kg

DRUGS (3)
  1. XOLAIR [Suspect]
     Active Substance: OMALIZUMAB
     Indication: Urticaria
     Route: 058
     Dates: start: 202504
  2. XOLAIR [Suspect]
     Active Substance: OMALIZUMAB
     Route: 058
     Dates: start: 20250501
  3. FUROSEMIDE [Concomitant]
     Active Substance: FUROSEMIDE
     Indication: Cardiac failure
     Route: 048
     Dates: start: 20250511

REACTIONS (5)
  - Cardiac failure [Not Recovered/Not Resolved]
  - Exposure via skin contact [Unknown]
  - Drug hypersensitivity [Not Recovered/Not Resolved]
  - Accidental underdose [Unknown]
  - Device defective [Unknown]

NARRATIVE: CASE EVENT DATE: 20250516
